FAERS Safety Report 8555330-9 (Version None)
Quarter: 2012Q3

REPORT INFORMATION
  Report Type: 
  Country: None (occurrence: None)
  Receive Date: 20120731
  Receipt Date: 20120426
  Transmission Date: 20120928
  Serious: No
  Sender: FDA-Public Use
  Company Number: US-ASTRAZENECA-2011SE28049

PATIENT
  Age: 51 Year
  Sex: Female
  Weight: 89.4 kg

DRUGS (22)
  1. SEROQUEL [Suspect]
     Route: 048
  2. SEROQUEL [Suspect]
     Route: 048
  3. IBUPROFEN [Concomitant]
  4. SEROQUEL [Suspect]
     Route: 048
     Dates: start: 20110101, end: 20110601
  5. TYLENOL 3 WITH CODEINE [Concomitant]
  6. SEROQUEL [Suspect]
     Route: 048
     Dates: start: 19960101, end: 20110701
  7. SEROQUEL [Suspect]
     Route: 048
     Dates: start: 20110101, end: 20110601
  8. SEROQUEL [Suspect]
     Route: 048
     Dates: start: 20110601, end: 20120323
  9. VITAMIN TAB [Concomitant]
  10. SEROQUEL [Suspect]
     Indication: SCHIZOAFFECTIVE DISORDER
     Route: 048
  11. SEROQUEL [Suspect]
     Indication: BIPOLAR DISORDER
     Route: 048
  12. SEROQUEL [Suspect]
     Indication: SCHIZOPHRENIA
     Route: 048
  13. SEROQUEL [Suspect]
     Route: 048
     Dates: start: 19960101, end: 20110701
  14. KLONOPIN [Concomitant]
  15. SEROQUEL [Suspect]
     Route: 048
  16. SEROQUEL [Suspect]
     Route: 048
  17. SEROQUEL [Suspect]
     Route: 048
  18. SEROQUEL [Suspect]
     Route: 048
  19. SEROQUEL [Suspect]
     Route: 048
     Dates: start: 20110601, end: 20120323
  20. SEROQUEL [Suspect]
     Route: 048
     Dates: start: 19960101, end: 20110701
  21. SEROQUEL [Suspect]
     Route: 048
     Dates: start: 20110601, end: 20120323
  22. SEROQUEL [Suspect]
     Route: 048
     Dates: start: 20110101, end: 20110601

REACTIONS (12)
  - ABNORMAL DREAMS [None]
  - IRRITABILITY [None]
  - RESTLESS LEGS SYNDROME [None]
  - INTENTIONAL DRUG MISUSE [None]
  - ADVERSE DRUG REACTION [None]
  - HYPERPHAGIA [None]
  - INSOMNIA [None]
  - FLASHBACK [None]
  - HALLUCINATION, AUDITORY [None]
  - ACTIVITIES OF DAILY LIVING IMPAIRED [None]
  - THINKING ABNORMAL [None]
  - FATIGUE [None]
